FAERS Safety Report 6810450-1 (Version None)
Quarter: 2010Q2

REPORT INFORMATION
  Report Type: 
  Country: None (occurrence: None)
  Receive Date: 20100630
  Receipt Date: 20100520
  Transmission Date: 20101027
  Serious: Yes (Death, Hospitalization, Other)
  Sender: FDA-Public Use
  Company Number: US-BAXTER-2010BH014221

PATIENT
  Age: 67 Year
  Sex: Male

DRUGS (12)
  1. HEPARIN SODIUM [Suspect]
     Indication: HAEMODIALYSIS
     Route: 040
     Dates: start: 20071018, end: 20071018
  2. HEPARIN SODIUM [Suspect]
     Indication: PERITONEAL DIALYSIS
     Route: 040
     Dates: start: 20071018, end: 20071018
  3. HEPARIN SODIUM [Suspect]
     Route: 042
     Dates: start: 20071018, end: 20071018
  4. HEPARIN SODIUM [Suspect]
     Route: 042
     Dates: start: 20071018, end: 20071018
  5. HEPARIN SODIUM [Suspect]
     Route: 010
     Dates: start: 20071001, end: 20080101
  6. HEPARIN SODIUM [Suspect]
     Route: 010
     Dates: start: 20071001, end: 20080101
  7. HEPARIN SODIUM [Suspect]
     Route: 065
     Dates: start: 20080101, end: 20080101
  8. HEPARIN SODIUM [Suspect]
     Route: 065
     Dates: start: 20080101, end: 20080101
  9. ANTIBIOTICS [Concomitant]
     Indication: DRUG USE FOR UNKNOWN INDICATION
     Route: 065
  10. DIANEAL [Concomitant]
     Indication: PERITONEAL DIALYSIS
     Route: 033
  11. DIANEAL [Concomitant]
     Indication: PERITONEAL DIALYSIS
     Route: 033
  12. VENOFER [Concomitant]
     Indication: DRUG USE FOR UNKNOWN INDICATION
     Route: 065

REACTIONS (18)
  - ABDOMINAL PAIN [None]
  - ANTIBIOTIC RESISTANT STAPHYLOCOCCUS TEST POSITIVE [None]
  - APHAGIA [None]
  - ASTHENIA [None]
  - CARDIAC ARREST [None]
  - CARDIO-RESPIRATORY ARREST [None]
  - CHEST PAIN [None]
  - CHILLS [None]
  - DECREASED APPETITE [None]
  - DIARRHOEA [None]
  - DYSPNOEA [None]
  - FAECAL INCONTINENCE [None]
  - PERITONEAL CLOUDY EFFLUENT [None]
  - PERITONITIS [None]
  - PURULENT DISCHARGE [None]
  - RENAL IMPAIRMENT [None]
  - URINARY INCONTINENCE [None]
  - VOMITING [None]
